FAERS Safety Report 5844426-8 (Version None)
Quarter: 2008Q3

REPORT INFORMATION
  Report Type: 
  Country: None (occurrence: None)
  Receive Date: 20080811
  Receipt Date: 20080730
  Transmission Date: 20090109
  Serious: Yes (Death, Hospitalization, Other)
  Sender: FDA-Public Use
  Company Number: WAES 0807USA05644

PATIENT
  Age: 77 Year
  Sex: Male

DRUGS (19)
  1. DECADRON [Suspect]
     Indication: IDIOPATHIC THROMBOCYTOPENIC PURPURA
     Dosage: 6 MG/ DAILY PO
     Route: 048
     Dates: start: 20070913, end: 20070914
  2. DECADRON [Suspect]
     Indication: IDIOPATHIC THROMBOCYTOPENIC PURPURA
     Dosage: PO
     Route: 048
     Dates: start: 20070913
  3. AMBISOME [Suspect]
     Dosage: 300 MG DIV
     Dates: start: 20071005, end: 20071010
  4. AMBISOME [Suspect]
     Dosage: 200 MG DIV
     Dates: start: 20071011, end: 20071014
  5. AZACTAM [Concomitant]
  6. BACTRIM [Concomitant]
  7. DENOSINE [Concomitant]
  8. DIFLUCAN [Concomitant]
  9. FUNGUARD [Concomitant]
  10. MAXIPIME [Concomitant]
  11. MEROPEN [Concomitant]
  12. MINOCYCLINE HCL [Concomitant]
  13. OMEPRAZOLE [Concomitant]
  14. GAMIMUNE N 5% [Concomitant]
  15. PREDNISOLON [Concomitant]
  16. VFEND [Concomitant]
  17. VICCLOX [Concomitant]
  18. ANTITHROMBIN III [Concomitant]
  19. VANCOMYCIN HYDROCHLORIDE [Concomitant]

REACTIONS (12)
  - ALANINE AMINOTRANSFERASE INCREASED [None]
  - ANTITHROMBIN III DEFICIENCY [None]
  - ASPARTATE AMINOTRANSFERASE INCREASED [None]
  - CONDITION AGGRAVATED [None]
  - CYTOMEGALOVIRUS INFECTION [None]
  - HAEMODIALYSIS [None]
  - HYPERKALAEMIA [None]
  - IDIOPATHIC THROMBOCYTOPENIC PURPURA [None]
  - LIVER DISORDER [None]
  - PNEUMONIA [None]
  - RENAL IMPAIRMENT [None]
  - RESPIRATORY FAILURE [None]
